FAERS Safety Report 9323983 (Version 4)
Quarter: 2013Q3

REPORT INFORMATION
  Report Type: Spontaneous
  Country: US (occurrence: US)
  Receive Date: 20130603
  Receipt Date: 20130924
  Transmission Date: 20140515
  Serious: Yes (Other)
  Sender: FDA-Public Use
  Company Number: US-ROCHE-1229906

PATIENT
  Age: 42 Year
  Sex: Female

DRUGS (7)
  1. XOLAIR [Suspect]
     Indication: ASTHMA
     Route: 058
     Dates: start: 20130430
  2. XOLAIR [Suspect]
     Route: 058
     Dates: start: 20130514
  3. XOLAIR [Suspect]
     Route: 058
     Dates: start: 20130904
  4. XOLAIR [Suspect]
     Route: 058
     Dates: start: 20130918
  5. SYMBICORT [Concomitant]
  6. SINGULAIR [Concomitant]
  7. SALBUTAMOL [Concomitant]

REACTIONS (11)
  - Heart rate increased [Recovered/Resolved]
  - Dyspnoea exertional [Unknown]
  - Pharyngeal oedema [Not Recovered/Not Resolved]
  - Dysphagia [Unknown]
  - Wheezing [Recovered/Resolved]
  - Respiratory tract congestion [Unknown]
  - Increased upper airway secretion [Unknown]
  - Cough [Not Recovered/Not Resolved]
  - Fatigue [Unknown]
  - Dysphonia [Not Recovered/Not Resolved]
  - Ear discomfort [Unknown]
